FAERS Safety Report 4880633-9 (Version None)
Quarter: 2006Q1

REPORT INFORMATION
  Report Type: 
  Country: None (occurrence: None)
  Receive Date: 20060113
  Receipt Date: 20051004
  Transmission Date: 20060701
  Serious: Yes (Hospitalization, Disabling)
  Sender: FDA-Public Use
  Company Number: US-MERCK-0510USA03831

PATIENT
  Sex: Female
  Weight: 77 kg

DRUGS (11)
  1. NAPROXEN [Concomitant]
     Indication: ARTHRITIS
     Route: 065
  2. NAPROXEN [Concomitant]
     Indication: PAIN
     Route: 065
  3. ESTROGENS (UNSPECIFIED) [Concomitant]
     Indication: ARTERIOSCLEROSIS
     Route: 065
     Dates: start: 20031201
  4. SINGULAIR [Concomitant]
     Indication: ASTHMA
     Route: 065
  5. POTASSIUM CHLORIDE [Concomitant]
     Indication: CARDIAC DISORDER
     Route: 065
     Dates: start: 20000101
  6. VIOXX [Suspect]
     Indication: OSTEOARTHRITIS
     Route: 048
     Dates: start: 20000101, end: 20040115
  7. VIOXX [Suspect]
     Indication: PAIN
     Route: 048
     Dates: start: 20000101, end: 20040115
  8. BEXTRA [Concomitant]
     Indication: ARTHRITIS
     Route: 065
     Dates: start: 20020910
  9. CELEBREX [Concomitant]
     Indication: ARTHRITIS
     Route: 065
     Dates: start: 20020920
  10. CELEBREX [Concomitant]
     Indication: PAIN
     Route: 065
     Dates: start: 20020920
  11. DARVOCET-N 50 [Concomitant]
     Indication: ARTHRITIS
     Route: 065
     Dates: start: 20020820

REACTIONS (18)
  - ARTHROPATHY [None]
  - BACK DISORDER [None]
  - BLOOD CHOLESTEROL INCREASED [None]
  - BLOOD TRIGLYCERIDES INCREASED [None]
  - CARDIAC VALVE DISEASE [None]
  - CHOLELITHIASIS [None]
  - CORONARY ARTERY DISEASE [None]
  - DIABETES MELLITUS [None]
  - GASTRIC DISORDER [None]
  - GASTROOESOPHAGEAL REFLUX DISEASE [None]
  - GENERAL SYMPTOM [None]
  - GOUT [None]
  - HYPERTENSION [None]
  - MUSCLE SPASMS [None]
  - MYOCARDIAL INFARCTION [None]
  - OEDEMA [None]
  - OVARIAN CYST [None]
  - PEPTIC ULCER [None]
